FAERS Safety Report 12272986 (Version 1)
Quarter: 2016Q2

REPORT INFORMATION
  Report Type: Spontaneous
  Country: US (occurrence: US)
  Receive Date: 20160415
  Receipt Date: 20160415
  Transmission Date: 20160815
  Serious: Yes (Other)
  Sender: FDA-Public Use
  Company Number: US-PFIZER INC-2016197856

PATIENT
  Age: 74 Year
  Sex: Male
  Weight: 84.35 kg

DRUGS (1)
  1. LYRICA [Suspect]
     Active Substance: PREGABALIN
     Indication: HERPES ZOSTER
     Dosage: 75 MG, 1X/DAY

REACTIONS (5)
  - Vision blurred [Unknown]
  - Therapeutic response unexpected [Unknown]
  - Cataract [Unknown]
  - Poor quality drug administered [Unknown]
  - Pre-existing condition improved [Unknown]
